FAERS Safety Report 10296358 (Version 3)
Quarter: 2015Q1

REPORT INFORMATION
  Report Type: Spontaneous
  Country: JP (occurrence: JP)
  Receive Date: 20140711
  Receipt Date: 20150113
  Transmission Date: 20150720
  Serious: Yes (Other)
  Sender: FDA-Public Use
  Company Number: JP-BAYER-2014-100550

PATIENT
  Age: 62 Year
  Sex: Female

DRUGS (1)
  1. STIVARGA [Suspect]
     Active Substance: REGORAFENIB
     Indication: GASTROINTESTINAL STROMAL TUMOUR
     Dosage: 160 MG, QD (FOR 3 WEEKS ON AND 1 WEEK OFF)
     Route: 048
     Dates: start: 201310

REACTIONS (2)
  - Stomatitis [Recovering/Resolving]
  - Cholangitis [Recovering/Resolving]
